FAERS Safety Report 14653814 (Version 2)
Quarter: 2018Q2

REPORT INFORMATION
  Report Type: Spontaneous
  Country: US (occurrence: US)
  Receive Date: 20180319
  Receipt Date: 20180426
  Transmission Date: 20180711
  Serious: No
  Sender: FDA-Public Use
  Company Number: US-PFIZER INC-2018109861

PATIENT
  Age: 8 Year
  Sex: Male
  Weight: 26.76 kg

DRUGS (1)
  1. CHILDRENS ADVIL [Suspect]
     Active Substance: IBUPROFEN
     Indication: HEADACHE
     Dosage: UNK, 2X/DAY (ONE TIME IN THE MORNING AND ONE TIME IN THE NIGHT)
     Route: 048
     Dates: start: 20180312, end: 20180312

REACTIONS (3)
  - Poor quality drug administered [Unknown]
  - Vomiting [Unknown]
  - Liquid product physical issue [Unknown]

NARRATIVE: CASE EVENT DATE: 20180312
